FAERS Safety Report 8174024-5 (Version None)
Quarter: 2012Q1

REPORT INFORMATION
  Report Type: 
  Country: None (occurrence: None)
  Receive Date: 20120227
  Receipt Date: 20120216
  Transmission Date: 20120608
  Serious: Yes (Other)
  Sender: FDA-Public Use
  Company Number: 1202-092

PATIENT
  Age: 73 Year
  Sex: Female

DRUGS (12)
  1. AMLODIPINE [Concomitant]
  2. ASPIRIN [Concomitant]
  3. MIRALAX [Concomitant]
  4. MULTIVITAMINSV(MULTIVITAMINS) [Concomitant]
  5. LOVAZA [Concomitant]
  6. SERTRALINE HYDROCHLORIDE [Concomitant]
  7. METOPROLOL TARTRATE [Concomitant]
  8. PRESERVISION(OCUVITE/01762701/) [Concomitant]
  9. EYLEA [Suspect]
     Indication: AGE-RELATED MACULAR DEGENERATION
     Dosage: INTRAVITREAL
     Dates: start: 20120208
  10. VICODIN [Concomitant]
  11. POTASSIUM CHLORIDE [Concomitant]
  12. TRAZODONE HCL [Concomitant]

REACTIONS (4)
  - UVEITIS [None]
  - PAIN [None]
  - ANTERIOR CHAMBER FLARE [None]
  - IRIS ADHESIONS [None]
